FAERS Safety Report 20658683 (Version 3)
Quarter: 2022Q3

REPORT INFORMATION
  Report Type: Report from Study
  Country: US (occurrence: US)
  Receive Date: 20220331
  Receipt Date: 20220906
  Transmission Date: 20221027
  Serious: Yes (Other)
  Sender: FDA-Public Use
  Company Number: US-NOVARTISTESTPH-NVSC2022US073237

PATIENT
  Age: 43 Year
  Sex: Female

DRUGS (3)
  1. KESIMPTA [Suspect]
     Active Substance: OFATUMUMAB
     Indication: Multiple sclerosis
     Dosage: 20 MG, QW (20MG/0/4ML)
     Route: 058
     Dates: start: 20220325
  2. KESIMPTA [Suspect]
     Active Substance: OFATUMUMAB
     Dosage: 20 MG, QMO
     Route: 058
  3. KESIMPTA [Suspect]
     Active Substance: OFATUMUMAB
     Dosage: UNK
     Route: 065
     Dates: start: 20220621

REACTIONS (7)
  - Multiple sclerosis [Unknown]
  - Fatigue [Unknown]
  - Muscle twitching [Unknown]
  - Asthenia [Unknown]
  - Injection site pain [Recovered/Resolved]
  - Feeling jittery [Unknown]
  - Pyrexia [Unknown]

NARRATIVE: CASE EVENT DATE: 20220325
